FAERS Safety Report 14373302 (Version 1)
Quarter: 2018Q1

REPORT INFORMATION
  Report Type: Spontaneous
  Country: US (occurrence: US)
  Receive Date: 20180109
  Receipt Date: 20180109
  Transmission Date: 20180509
  Serious: No
  Sender: FDA-Public Use
  Company Number: None

PATIENT
  Age: 68 Year
  Sex: Male

DRUGS (1)
  1. TICAGRELOR. [Suspect]
     Active Substance: TICAGRELOR
     Route: 048
     Dates: start: 20160908, end: 20170717

REACTIONS (5)
  - Therapy cessation [None]
  - Brain midline shift [None]
  - Headache [None]
  - Subdural haemorrhage [None]
  - Seizure [None]

NARRATIVE: CASE EVENT DATE: 20170615
